FAERS Safety Report 6510156-2 (Version None)
Quarter: 2009Q4

REPORT INFORMATION
  Report Type: 
  Country: None (occurrence: None)
  Receive Date: 20091221
  Receipt Date: 20091221
  Transmission Date: 20100525
  Serious: No
  Sender: FDA-Public Use
  Company Number: None

PATIENT
  Age: 66 Year
  Sex: Male
  Weight: 95.2554 kg

DRUGS (6)
  1. CLONIDINE [Suspect]
     Indication: HYPERTENSION
     Dosage: 0.3 MG/DAY APPLY Q WEEK TRANSDERMAL
     Route: 062
     Dates: start: 20091116, end: 20091220
  2. NIASPAN [Concomitant]
  3. LIPITOR [Concomitant]
  4. TEKTURNA [Concomitant]
  5. METOPROLOL XR [Concomitant]
  6. BENAZEPRIL HYDROCHLORIDE [Concomitant]

REACTIONS (6)
  - APPLICATION SITE PRURITUS [None]
  - APPLICATION SITE RASH [None]
  - BLOOD PRESSURE FLUCTUATION [None]
  - PRODUCT QUALITY ISSUE [None]
  - PRODUCT SUBSTITUTION ISSUE [None]
  - WRONG TECHNIQUE IN DRUG USAGE PROCESS [None]
